FAERS Safety Report 25499480 (Version 1)
Quarter: 2025Q2

REPORT INFORMATION
  Report Type: Spontaneous
  Country: US (occurrence: None)
  Receive Date: 20250627
  Receipt Date: 20250627
  Transmission Date: 20250716
  Serious: No
  Sender: FDA-CTU
  Company Number: None

PATIENT
  Age: 57 Year
  Sex: Female

DRUGS (1)
  1. LEVOFLOXACIN [Suspect]
     Active Substance: LEVOFLOXACIN
     Dosage: 500 MG DAILY ORAL
     Route: 048
     Dates: start: 20250624

REACTIONS (2)
  - Nonspecific reaction [None]
  - Rash [None]

NARRATIVE: CASE EVENT DATE: 20250624
